FAERS Safety Report 11141836 (Version 10)
Quarter: 2019Q4

REPORT INFORMATION
  Report Type: Spontaneous
  Country: US (occurrence: US)
  Receive Date: 20150527
  Receipt Date: 20191025
  Transmission Date: 20200122
  Serious: No
  Sender: FDA-Public Use
  Company Number: US-PFIZER INC-2015167914

PATIENT
  Sex: Female
  Weight: 90 kg

DRUGS (10)
  1. LYRICA [Suspect]
     Active Substance: PREGABALIN
     Indication: POST PROCEDURAL COMPLICATION
     Dosage: 150 MG, 2X/DAY
     Route: 048
     Dates: start: 20150403
  2. LYRICA [Suspect]
     Active Substance: PREGABALIN
     Indication: PAIN IN EXTREMITY
     Dosage: 150 MG, 2X/DAY
     Dates: start: 20150418
  3. LYRICA [Suspect]
     Active Substance: PREGABALIN
     Indication: NEUROPATHY PERIPHERAL
  4. METFORMIN [Concomitant]
     Active Substance: METFORMIN HYDROCHLORIDE
     Indication: DIABETES MELLITUS
     Dosage: 500 MG, 2X/DAY
  5. LYRICA [Suspect]
     Active Substance: PREGABALIN
     Indication: PAIN IN EXTREMITY
     Dosage: 450 MG, 1X/DAY (TAKE 3 CAPSULES (450 MG TOTAL) BY MOUTH NIGHTLY)
     Route: 048
  6. LYRICA [Suspect]
     Active Substance: PREGABALIN
     Indication: DYSKINESIA
  7. LYRICA [Suspect]
     Active Substance: PREGABALIN
     Indication: PAIN
  8. LEVOTHYROXINE. [Concomitant]
     Active Substance: LEVOTHYROXINE
     Indication: THYROID DISORDER
     Dosage: UNK, 1X/DAY
  9. LYRICA [Suspect]
     Active Substance: PREGABALIN
     Indication: INSOMNIA
  10. LISINOPRIL. [Concomitant]
     Active Substance: LISINOPRIL
     Indication: HYPERTENSION
     Dosage: 10 MG, 1X/DAY

REACTIONS (6)
  - Insomnia [Unknown]
  - Hypertension [Unknown]
  - Malaise [Unknown]
  - Hypoacusis [Unknown]
  - Headache [Unknown]
  - Feeling abnormal [Unknown]
